FAERS Safety Report 4707899-X (Version None)
Quarter: 2005Q3

REPORT INFORMATION
  Report Type: 
  Country: None (occurrence: None)
  Receive Date: 20050707
  Receipt Date: 20041214
  Transmission Date: 20060218
  Serious: No
  Sender: FDA-Public Use
  Company Number: US-BRISTOL-MYERS SQUIBB COMPANY-12795589

PATIENT
  Age: 53 Year
  Sex: Female
  Weight: 57 kg

DRUGS (3)
  1. SINEMET CR [Suspect]
     Indication: CLOSED HEAD INJURY
     Route: 048
     Dates: start: 20040701
  2. FLEXERIL [Concomitant]
  3. VITAMIN SUPPLEMENT [Concomitant]

REACTIONS (2)
  - ASTHENIA [None]
  - MUSCLE SPASMS [None]
